FAERS Safety Report 7009288-4 (Version None)
Quarter: 2010Q3

REPORT INFORMATION
  Report Type: 
  Country: None (occurrence: None)
  Receive Date: 20100921
  Receipt Date: 20100906
  Transmission Date: 20110219
  Serious: Yes (Hospitalization)
  Sender: FDA-Public Use
  Company Number: CTI_01229_2010

PATIENT
  Age: 72 Year
  Sex: Male

DRUGS (2)
  1. MEIACT (MEIACT MS (CEFDITOREN PIVOXIL)) 300 MG (NOT SPECIFIED) [Suspect]
     Indication: ANTIBIOTIC PROPHYLAXIS
     Dosage: (DF ORAL)
     Route: 048
     Dates: start: 20100701
  2. LOXONIN (LOXONIN (LOXOPROFEN SODIUM HYDRATE)) 180 MG (NOT SPECIFIED) [Suspect]
     Indication: ANALGESIC THERAPY
     Dosage: (DF ORAL)
     Route: 048
     Dates: start: 20100701

REACTIONS (5)
  - ALANINE AMINOTRANSFERASE INCREASED [None]
  - ASPARTATE AMINOTRANSFERASE INCREASED [None]
  - GAMMA-GLUTAMYLTRANSFERASE INCREASED [None]
  - JAUNDICE CHOLESTATIC [None]
  - LYMPHOCYTE STIMULATION TEST POSITIVE [None]
